FAERS Safety Report 6154882-6 (Version None)
Quarter: 2009Q2

REPORT INFORMATION
  Report Type: 
  Country: None (occurrence: None)
  Receive Date: 20090414
  Receipt Date: 20090406
  Transmission Date: 20091009
  Serious: Yes (Other)
  Sender: FDA-Public Use
  Company Number: PHHY2009ES07121

PATIENT
  Age: 80 Year
  Sex: Male

DRUGS (4)
  1. RASILEZ [Suspect]
     Dosage: 150 MG / DAY
     Dates: start: 20090101
  2. PREVENCOR [Concomitant]
     Dosage: 10 MG
  3. METFORMIN HCL [Concomitant]
     Dosage: 850 MG, BID
  4. DIAMICRON [Concomitant]

REACTIONS (7)
  - ANAPHYLACTIC REACTION [None]
  - ANGIOEDEMA [None]
  - DYSPNOEA [None]
  - EYELID OEDEMA [None]
  - PRURITUS [None]
  - RASH [None]
  - RESPIRATORY DISORDER [None]
